FAERS Safety Report 7052105-7 (Version None)
Quarter: 2010Q4

REPORT INFORMATION
  Report Type: 
  Country: None (occurrence: None)
  Receive Date: 20101019
  Receipt Date: 20101006
  Transmission Date: 20110411
  Serious: Yes (Hospitalization, Other)
  Sender: FDA-Public Use
  Company Number: PHEH2008US04337

PATIENT
  Sex: Female

DRUGS (50)
  1. AREDIA [Suspect]
     Dosage: UNK
  2. ZOMETA [Suspect]
     Dosage: UNK
  3. FOSAMAX [Suspect]
  4. ACTONEL [Suspect]
  5. BENTYL [Concomitant]
  6. REGLAN [Concomitant]
  7. ALLEGRA D 24 HOUR [Concomitant]
  8. NEXIUM [Concomitant]
  9. OXYGEN [Concomitant]
  10. DEXAMETHASONE [Concomitant]
  11. FLEXERIL [Concomitant]
  12. AUGMENTIN '125' [Concomitant]
  13. GEMZAR [Concomitant]
  14. NEULASTA [Concomitant]
  15. CISPLATIN [Concomitant]
  16. CIPRO [Concomitant]
  17. CARBOPLATIN [Concomitant]
  18. ARANESP [Concomitant]
  19. CALTRATE [Concomitant]
  20. FLAGYL [Concomitant]
  21. ZETIA [Concomitant]
  22. TRAZODONE HCL [Concomitant]
  23. ARMOUR THYROID [Concomitant]
  24. DUONEB [Concomitant]
     Dosage: UNK
  25. ADVAIR DISKUS 100/50 [Concomitant]
  26. CEFTIN [Concomitant]
  27. LOVENOX [Concomitant]
  28. COUMADIN [Concomitant]
  29. FOLIC ACID [Concomitant]
  30. SODIUM CHLORIDE [Concomitant]
  31. TESTOSTERONE [Concomitant]
     Dosage: UNK,QD
  32. THYROID [Concomitant]
     Dosage: 0.5 GRAIN, QD
  33. MAGNESIUM [Concomitant]
     Dosage: 400, QD
  34. AMINO ACIDS [Concomitant]
     Dosage: UNK, QD
  35. BETAINE HYDROCHLORIDE [Concomitant]
     Dosage: QD,
  36. CELEXA [Concomitant]
     Dosage: 40MG, DAILY
  37. ARANESP [Concomitant]
     Dosage: 1256 MCG,UNK
     Dates: start: 20080225
  38. FLEXERIL [Concomitant]
  39. ALBUTEROL [Concomitant]
  40. WELLBUTRIN [Concomitant]
  41. HUMIBID [Concomitant]
  42. POTASSIUM CHLORIDE [Concomitant]
  43. ZOCOR [Concomitant]
  44. CALCIUM [Concomitant]
  45. LASIX [Concomitant]
  46. SEREVENT [Concomitant]
  47. AEROBID [Concomitant]
  48. ARMOUR THYROID [Concomitant]
  49. COMBIVENT                               /GFR/ [Concomitant]
  50. PERIDEX [Concomitant]

REACTIONS (99)
  - ABDOMINAL PAIN [None]
  - ACUTE STRESS DISORDER [None]
  - ANAEMIA [None]
  - ANAL INFLAMMATION [None]
  - ANHEDONIA [None]
  - ANXIETY [None]
  - ARTERIOSCLEROSIS [None]
  - ARTHRALGIA [None]
  - ARTHROPATHY [None]
  - ASTHENIA [None]
  - ATELECTASIS [None]
  - ATRIOVENTRICULAR BLOCK FIRST DEGREE [None]
  - BLOOD GLUCOSE INCREASED [None]
  - BREAST OPERATION [None]
  - BREAST RECONSTRUCTION [None]
  - BRONCHITIS [None]
  - BRONCHOPULMONARY ASPERGILLOSIS [None]
  - CENTRAL VENOUS CATHETERISATION [None]
  - CERVICAL SPINAL STENOSIS [None]
  - CHEST DISCOMFORT [None]
  - CHEST PAIN [None]
  - CHOLECYSTITIS [None]
  - CHOLELITHIASIS [None]
  - COLONIC POLYP [None]
  - CONSTIPATION [None]
  - CONTUSION [None]
  - COUGH [None]
  - CYST [None]
  - DEEP VEIN THROMBOSIS [None]
  - DEPRESSION [None]
  - DERMAL CYST [None]
  - DISABILITY [None]
  - DIVERTICULUM [None]
  - DYSURIA [None]
  - EMPHYSEMA [None]
  - EXOSTOSIS [None]
  - FATIGUE [None]
  - FIBULA FRACTURE [None]
  - FLANK PAIN [None]
  - GALLBLADDER OPERATION [None]
  - HAEMORRHOIDS [None]
  - HEPATIC LESION [None]
  - HILAR LYMPHADENOPATHY [None]
  - HYPERLIPIDAEMIA [None]
  - HYPOAESTHESIA [None]
  - HYPOKALAEMIA [None]
  - HYPONATRAEMIA [None]
  - INJURY [None]
  - INTERNATIONAL NORMALISED RATIO INCREASED [None]
  - INTERSTITIAL LUNG DISEASE [None]
  - INTERVERTEBRAL DISC DEGENERATION [None]
  - INTERVERTEBRAL DISC PROTRUSION [None]
  - INTERVERTEBRAL DISC SPACE NARROWING [None]
  - JOINT SPRAIN [None]
  - KIDNEY INFECTION [None]
  - LARGE INTESTINAL HAEMORRHAGE [None]
  - LEUKOCYTOSIS [None]
  - LOBAR PNEUMONIA [None]
  - LOCAL SWELLING [None]
  - LUNG NEOPLASM [None]
  - LYMPHADENOPATHY MEDIASTINAL [None]
  - METASTATIC NEOPLASM [None]
  - MUSCLE STRAIN [None]
  - MUSCULAR WEAKNESS [None]
  - MUSCULOSKELETAL PAIN [None]
  - NECK PAIN [None]
  - NEOPLASM MALIGNANT [None]
  - NEUTROPENIA [None]
  - OEDEMA MUCOSAL [None]
  - OSTEOARTHRITIS [None]
  - OSTEOMYELITIS [None]
  - OSTEONECROSIS OF JAW [None]
  - OSTEOPENIA [None]
  - OSTEOPOROSIS [None]
  - PAIN [None]
  - PALPITATIONS [None]
  - PARAESTHESIA [None]
  - PARANASAL SINUS DISCOMFORT [None]
  - PERNICIOUS ANAEMIA [None]
  - PLEURAL EFFUSION [None]
  - PULMONARY FIBROSIS [None]
  - PULMONARY HYPERTENSION [None]
  - PYREXIA [None]
  - RECTAL HAEMORRHAGE [None]
  - RESPIRATORY DISORDER [None]
  - SKIN CYST EXCISION [None]
  - SKIN LACERATION [None]
  - SLEEP APNOEA SYNDROME [None]
  - SMALL CELL LUNG CANCER STAGE UNSPECIFIED [None]
  - THROMBOCYTOSIS [None]
  - THYROID DISORDER [None]
  - TOOTH EXTRACTION [None]
  - URINARY TRACT INFECTION [None]
  - VENOUS OCCLUSION [None]
  - VENOUS THROMBOSIS [None]
  - VISUAL ACUITY REDUCED [None]
  - VITAMIN B12 DEFICIENCY [None]
  - VULVOVAGINAL DRYNESS [None]
  - WHEEZING [None]
